FAERS Safety Report 25453378 (Version 1)
Quarter: 2025Q2

REPORT INFORMATION
  Report Type: Spontaneous
  Country: US (occurrence: US)
  Receive Date: 20250619
  Receipt Date: 20250619
  Transmission Date: 20250717
  Serious: Yes (Other)
  Sender: ABBVIE
  Company Number: US-ABBVIE-6331387

PATIENT
  Sex: Female

DRUGS (1)
  1. LUPRON [Suspect]
     Active Substance: LEUPROLIDE ACETATE
     Indication: Menstrual disorder
     Route: 030

REACTIONS (3)
  - Neoplasm malignant [Not Recovered/Not Resolved]
  - Intermenstrual bleeding [Unknown]
  - Device dislocation [Not Recovered/Not Resolved]
